FAERS Safety Report 22589301 (Version 1)
Quarter: 2023Q2

REPORT INFORMATION
  Report Type: Spontaneous
  Country: IT (occurrence: IT)
  Receive Date: 20230612
  Receipt Date: 20230612
  Transmission Date: 20230722
  Serious: Yes (Other)
  Sender: FDA-Public Use
  Company Number: None

PATIENT
  Age: 59 Year
  Sex: Female

DRUGS (1)
  1. PACLITAXEL [Suspect]
     Active Substance: PACLITAXEL
     Indication: Neoplasm
     Dosage: DOSE: 80 MG/M3
     Route: 042
     Dates: start: 20230525, end: 20230525

REACTIONS (5)
  - Cognitive disorder [Recovering/Resolving]
  - Cold sweat [Recovering/Resolving]
  - Hypotensive crisis [Recovering/Resolving]
  - Tachycardia [Recovering/Resolving]
  - Hyperhidrosis [Recovering/Resolving]

NARRATIVE: CASE EVENT DATE: 20230525
